FAERS Safety Report 8767880 (Version 1)
Quarter: 2012Q4

REPORT INFORMATION
  Report Type: 
  Country: JP (occurrence: JP)
  Receive Date: 20120904
  Receipt Date: 20120904
  Transmission Date: 20130627
  Serious: Yes (Other)
  Sender: FDA-Public Use
  Company Number: PHHY2012JP074021

PATIENT
  Age: 59 Year
  Sex: Male

DRUGS (2)
  1. BICALUTAMIDE [Suspect]
     Indication: PROSTATE CANCER
     Dosage: 80 mg, UNK
  2. LEUPRORELIN ACETATE [Concomitant]
     Indication: PROSTATE CANCER
     Dosage: 11.25 mg, UNK

REACTIONS (10)
  - Photosensitivity reaction [Recovered/Resolved]
  - Rash [Recovered/Resolved]
  - Rash pruritic [Recovered/Resolved]
  - Exfoliative rash [Recovered/Resolved]
  - Rash erythematous [Recovered/Resolved]
  - Skin lesion [Recovered/Resolved]
  - Erythema [Recovered/Resolved]
  - Pigmentation disorder [Recovered/Resolved]
  - Oedema [Recovered/Resolved]
  - Lymphocytic infiltration [Recovered/Resolved]
